FAERS Safety Report 13653225 (Version 1)
Quarter: 2017Q2

REPORT INFORMATION
  Report Type: Spontaneous
  Country: US (occurrence: US)
  Receive Date: 20170614
  Receipt Date: 20170614
  Transmission Date: 20170830
  Serious: Yes (Hospitalization)
  Sender: FDA-Public Use
  Company Number: US-ROCHE-649088

PATIENT
  Age: 67 Year
  Sex: Male
  Weight: 90.7 kg

DRUGS (18)
  1. AVASTIN [Suspect]
     Active Substance: BEVACIZUMAB
     Route: 065
     Dates: start: 20090702, end: 20090702
  2. ELOXATIN [Suspect]
     Active Substance: OXALIPLATIN
     Route: 042
  3. ELOXATIN [Suspect]
     Active Substance: OXALIPLATIN
     Route: 042
     Dates: start: 20090724, end: 20090902
  4. XELODA [Suspect]
     Active Substance: CAPECITABINE
     Indication: COLON CANCER
     Dosage: FOR THE FIRST 14 DAYS OF THE 21 DAY CYCLE. 14XPER 1 CYCLICAL.
     Route: 048
  5. REQUIP [Concomitant]
     Active Substance: ROPINIROLE HYDROCHLORIDE
     Indication: PARKINSON^S DISEASE
     Route: 065
  6. SINEMET [Concomitant]
     Active Substance: CARBIDOPA\LEVODOPA
     Indication: PARKINSON^S DISEASE
     Route: 065
  7. XELODA [Suspect]
     Active Substance: CAPECITABINE
     Route: 048
  8. XELODA [Suspect]
     Active Substance: CAPECITABINE
     Route: 048
  9. AVASTIN [Suspect]
     Active Substance: BEVACIZUMAB
     Indication: COLON CANCER
     Route: 065
  10. XELODA [Suspect]
     Active Substance: CAPECITABINE
     Route: 048
  11. ELOXATIN [Suspect]
     Active Substance: OXALIPLATIN
     Route: 042
     Dates: start: 20090702, end: 20090702
  12. XANAX [Concomitant]
     Active Substance: ALPRAZOLAM
     Indication: ANXIETY
     Route: 065
  13. XELODA [Suspect]
     Active Substance: CAPECITABINE
     Route: 048
  14. XELODA [Suspect]
     Active Substance: CAPECITABINE
     Route: 048
     Dates: start: 20090702, end: 20090718
  15. ELOXATIN [Suspect]
     Active Substance: OXALIPLATIN
     Route: 042
  16. ELOXATIN [Suspect]
     Active Substance: OXALIPLATIN
     Indication: COLON CANCER
     Route: 042
  17. ELOXATIN [Suspect]
     Active Substance: OXALIPLATIN
     Route: 042
  18. ALOXI [Concomitant]
     Active Substance: PALONOSETRON HYDROCHLORIDE
     Indication: NAUSEA
     Route: 065

REACTIONS (12)
  - Dysphagia [Unknown]
  - Gastrointestinal disorder [Not Recovered/Not Resolved]
  - Lacrimation increased [Not Recovered/Not Resolved]
  - Dysaesthesia [Unknown]
  - Paraesthesia oral [Not Recovered/Not Resolved]
  - Speech disorder [Not Recovered/Not Resolved]
  - Tremor [Not Recovered/Not Resolved]
  - Transient ischaemic attack [Unknown]
  - Lip swelling [Unknown]
  - Hypoaesthesia oral [Not Recovered/Not Resolved]
  - Eyelid ptosis [Not Recovered/Not Resolved]
  - Nausea [Not Recovered/Not Resolved]

NARRATIVE: CASE EVENT DATE: 20090720
